FAERS Safety Report 7466018-X (Version None)
Quarter: 2011Q2

REPORT INFORMATION
  Report Type: 
  Country: None (occurrence: None)
  Receive Date: 20110509
  Receipt Date: 20100609
  Transmission Date: 20111010
  Serious: Yes (Hospitalization, Other)
  Sender: FDA-Public Use
  Company Number: US-ALEXION-A201000633

PATIENT
  Sex: Female

DRUGS (16)
  1. CLONAZEPAM [Concomitant]
  2. PREDNISONE [Concomitant]
  3. POTASSIUM [Concomitant]
  4. SOLIRIS [Suspect]
     Indication: PAROXYSMAL NOCTURNAL HAEMOGLOBINURIA
     Dosage: 600 MG, QW
     Route: 042
     Dates: start: 20100128
  5. ULTRAN [Concomitant]
  6. METAMUCIL                          /00029101/ [Concomitant]
  7. COLACE [Concomitant]
  8. OSCAL                              /00108001/ [Concomitant]
  9. PLAQUENIL [Concomitant]
  10. SOLIRIS [Suspect]
     Dosage: 900 MG, Q2W
     Route: 042
     Dates: start: 20100226
  11. EFFEXOR [Concomitant]
  12. LEUCOVORIN                         /00566701/ [Concomitant]
  13. METHOTREXATE [Concomitant]
  14. TYLENOL (CAPLET) [Concomitant]
  15. TRAZODONE [Concomitant]
  16. FOLIC ACID [Concomitant]

REACTIONS (5)
  - LIGAMENT INJURY [None]
  - INFECTION [None]
  - CELLULITIS [None]
  - HAND FRACTURE [None]
  - FALL [None]
